FAERS Safety Report 8319801-2 (Version None)
Quarter: 2012Q2

REPORT INFORMATION
  Report Type: 
  Country: None (occurrence: None)
  Receive Date: 20120427
  Receipt Date: 20120420
  Transmission Date: 20120825
  Serious: Yes (Hospitalization)
  Sender: FDA-Public Use
  Company Number: JP-AMGEN-JPNCT2012026491

PATIENT
  Age: 72 Year
  Sex: Female

DRUGS (1)
  1. PANITUMUMAB [Suspect]
     Indication: COLORECTAL CANCER
     Dosage: UNK, Q2WK
     Route: 041
     Dates: start: 20120228, end: 20120228

REACTIONS (1)
  - ELECTROCARDIOGRAM ST SEGMENT DEPRESSION [None]
